FAERS Safety Report 23503394 (Version 1)
Quarter: 2024Q1

REPORT INFORMATION
  Report Type: Report from Study
  Country: CA (occurrence: CA)
  Receive Date: 20240208
  Receipt Date: 20240208
  Transmission Date: 20240410
  Serious: Yes (Other)
  Sender: FDA-Public Use
  Company Number: CA-ABBVIE-5610916

PATIENT
  Age: 47 Year
  Sex: Male

DRUGS (1)
  1. RINVOQ [Suspect]
     Active Substance: UPADACITINIB
     Indication: Dermatitis atopic
     Dosage: FORM STRENGTH: 15 MILLIGRAM
     Route: 048
     Dates: start: 20220606

REACTIONS (12)
  - Necrotising fasciitis [Unknown]
  - Mental impairment [Unknown]
  - Unevaluable event [Unknown]
  - Depression [Unknown]
  - Anxiety [Unknown]
  - Dermatitis [Unknown]
  - Systemic lupus erythematosus [Unknown]
  - Dental caries [Unknown]
  - Visual impairment [Unknown]
  - Immune system disorder [Unknown]
  - Autoimmune haemolytic anaemia [Unknown]
  - Illness [Unknown]

NARRATIVE: CASE EVENT DATE: 20231201
